FAERS Safety Report 4423433-6 (Version None)
Quarter: 2004Q3

REPORT INFORMATION
  Report Type: 
  Country: None (occurrence: None)
  Receive Date: 20040806
  Receipt Date: 20040722
  Transmission Date: 20050211
  Serious: Yes (Death)
  Sender: FDA-Public Use
  Company Number: 2004S1002145

PATIENT
  Age: 15 Year
  Sex: Male

DRUGS (3)
  1. CLOZAPINE [Suspect]
     Indication: SCHIZOPHRENIA
     Dosage: 100MG TID, ORAL
     Route: 048
     Dates: start: 20040629
  2. LAMOTRIGINE [Concomitant]
  3. ANTIBIOTIC [Concomitant]

REACTIONS (3)
  - BONE MARROW DEPRESSION [None]
  - CEREBRAL HAEMORRHAGE [None]
  - COMA [None]
